FAERS Safety Report 14333259 (Version 4)
Quarter: 2018Q1

REPORT INFORMATION
  Report Type: Report from Study
  Country: US (occurrence: US)
  Receive Date: 20171228
  Receipt Date: 20180223
  Transmission Date: 20180509
  Serious: Yes (Death, Life-Threatening, Hospitalization, Other)
  Sender: FDA-Public Use
  Company Number: US-GILEAD-2017-0303469

PATIENT
  Age: 73 Year
  Sex: Female
  Weight: 56.69 kg

DRUGS (9)
  1. AMBRISENTAN [Suspect]
     Active Substance: AMBRISENTAN
     Dosage: 5 MG, UNK
     Route: 048
     Dates: start: 20170701
  2. ELIQUIS [Concomitant]
     Active Substance: APIXABAN
  3. OXYGEN. [Concomitant]
     Active Substance: OXYGEN
  4. TORSEMIDE. [Concomitant]
     Active Substance: TORSEMIDE
  5. AMBRISENTAN [Suspect]
     Active Substance: AMBRISENTAN
     Indication: PULMONARY ARTERIAL HYPERTENSION
     Dosage: 10 MG, UNK
     Route: 065
  6. GABAPENTIN. [Concomitant]
     Active Substance: GABAPENTIN
  7. ADCIRCA [Concomitant]
     Active Substance: TADALAFIL
     Indication: PULMONARY ARTERIAL HYPERTENSION
     Dosage: 40 MG, UNK
     Route: 048
     Dates: start: 20170701
  8. SPIRONOLACTONE. [Concomitant]
     Active Substance: SPIRONOLACTONE
  9. DIGOXIN. [Concomitant]
     Active Substance: DIGOXIN

REACTIONS (8)
  - Malaise [Unknown]
  - Acute respiratory failure [Fatal]
  - Pulmonary arterial hypertension [Unknown]
  - Cardiac arrest [Fatal]
  - Time perception altered [Not Recovered/Not Resolved]
  - Unresponsive to stimuli [Fatal]
  - Cardiogenic shock [Fatal]
  - Weight decreased [Unknown]

NARRATIVE: CASE EVENT DATE: 20171207
